FAERS Safety Report 6695918-3 (Version None)
Quarter: 2010Q2

REPORT INFORMATION
  Report Type: 
  Country: None (occurrence: None)
  Receive Date: 20100426
  Receipt Date: 20100413
  Transmission Date: 20101027
  Serious: Yes (Other)
  Sender: FDA-Public Use
  Company Number: HU-JNJFOC-20100405949

PATIENT
  Age: 71 Year
  Sex: Female

DRUGS (5)
  1. REMICADE [Suspect]
     Indication: RHEUMATOID ARTHRITIS
     Dosage: WEEK 14
     Route: 042
  2. REMICADE [Suspect]
     Dosage: WEEK 0, 2, 6,
     Route: 042
  3. PREDNISONE [Concomitant]
     Dosage: CONTINUOUS LOW DOSE STEROID THERAPY (5-15MG/DAY)
  4. METHOTREXATE [Concomitant]
     Indication: RHEUMATOID ARTHRITIS
     Dosage: DOSE 7.5 MG TO 20 MG /WEEK
  5. LEFLUNOMIDE [Concomitant]
     Indication: RHEUMATOID ARTHRITIS

REACTIONS (4)
  - ANTIPHOSPHOLIPID SYNDROME [None]
  - DEEP VEIN THROMBOSIS [None]
  - STREPTOCOCCAL INFECTION [None]
  - VASCULITIS NECROTISING [None]
